FAERS Safety Report 4281981-6 (Version None)
Quarter: 2004Q1

REPORT INFORMATION
  Report Type: 
  Country: None (occurrence: None)
  Receive Date: 20040128
  Receipt Date: 20031118
  Transmission Date: 20041129
  Serious: Yes (Death)
  Sender: FDA-Public Use
  Company Number: SUS1-2003-00553

PATIENT
  Age: 36 Year
  Sex: 0

DRUGS (3)
  1. CARBATROL [Suspect]
  2. ACETAMINOPHEN (LONG-ACTING)() [Suspect]
  3. DIPHENHYDRAMINE (DIPHENHYDRAMINE) [Suspect]

REACTIONS (1)
  - COMPLETED SUICIDE [None]
